FAERS Safety Report 25054909 (Version 1)
Quarter: 2025Q1

REPORT INFORMATION
  Report Type: Spontaneous
  Country: BR (occurrence: BR)
  Receive Date: 20250308
  Receipt Date: 20250308
  Transmission Date: 20250408
  Serious: Yes (Death, Hospitalization, Other)
  Sender: QUAGEN PHARMACEUTICALS
  Company Number: BR-QUAGEN-2025QUALIT00267

PATIENT
  Age: 15 Year
  Sex: Female
  Weight: 54 kg

DRUGS (2)
  1. VALPROIC ACID [Suspect]
     Active Substance: VALPROIC ACID
     Indication: Product used for unknown indication
     Route: 048
  2. QUETIAPINE [Concomitant]
     Active Substance: QUETIAPINE
     Indication: Product used for unknown indication
     Route: 048

REACTIONS (20)
  - Cardio-respiratory arrest [Fatal]
  - Unresponsive to stimuli [Unknown]
  - Multiple organ dysfunction syndrome [Unknown]
  - Shock [Unknown]
  - Hypovolaemic shock [Unknown]
  - Arrhythmia [Unknown]
  - Hyperkalaemia [Unknown]
  - Cyanosis [Unknown]
  - Electrolyte imbalance [Unknown]
  - Coagulopathy [Unknown]
  - Metabolic acidosis [Unknown]
  - Pneumonia aspiration [Unknown]
  - Leukocytosis [Unknown]
  - Blood lactic acid increased [Unknown]
  - Hyperphosphataemia [Unknown]
  - Hypovolaemia [Unknown]
  - Bradycardia [Unknown]
  - Dehydration [Unknown]
  - Toxicity to various agents [Unknown]
  - Intentional overdose [Unknown]
